FAERS Safety Report 23425695 (Version 1)
Quarter: 2024Q1

REPORT INFORMATION
  Report Type: Spontaneous
  Country: US (occurrence: US)
  Receive Date: 20240122
  Receipt Date: 20240122
  Transmission Date: 20240410
  Serious: Yes (Other)
  Sender: FDA-Public Use
  Company Number: US-DRL-USA-LIT/USA/24/0000999

PATIENT
  Age: 13 Month

DRUGS (5)
  1. LORAZEPAM [Suspect]
     Active Substance: LORAZEPAM
     Indication: Seizure
  2. FOSPHENYTOIN [Suspect]
     Active Substance: FOSPHENYTOIN
     Indication: Seizure
     Route: 042
  3. MIDAZOLAM [Suspect]
     Active Substance: MIDAZOLAM
  4. PHENOBARBITAL [Suspect]
     Active Substance: PHENOBARBITAL
     Indication: Seizure
     Route: 042
  5. KETAMINE [Suspect]
     Active Substance: KETAMINE
     Indication: Seizure

REACTIONS (2)
  - Drug ineffective [Recovering/Resolving]
  - Pyrexia [Recovering/Resolving]
